FAERS Safety Report 5527553-4 (Version None)
Quarter: 2007Q4

REPORT INFORMATION
  Report Type: 
  Country: None (occurrence: None)
  Receive Date: 20071128
  Receipt Date: 20071114
  Transmission Date: 20080405
  Serious: Yes (Other)
  Sender: FDA-Public Use
  Company Number: US-ELI_LILLY_AND_COMPANY-US200709004454

PATIENT
  Sex: Male
  Weight: 71.655 kg

DRUGS (6)
  1. FORTEO [Suspect]
     Indication: OSTEOPOROSIS
     Dosage: 20 UG, DAILY (1/D)
     Dates: start: 20070601
  2. FORTEO [Suspect]
     Dosage: 20 UG, DAILY (1/D)
  3. FORTEO [Suspect]
     Dosage: 20 UG, DAILY (1/D)
  4. ATENOLOL [Concomitant]
     Dosage: 50 MG, UNK
  5. CARDURA [Concomitant]
     Dosage: UNK, OTHER
  6. ADVAIR DISKUS 100/50 [Concomitant]
     Dosage: UNK, OTHER

REACTIONS (6)
  - DRUG INEFFECTIVE [None]
  - MOBILITY DECREASED [None]
  - MULTIPLE FRACTURES [None]
  - MULTIPLE MYELOMA [None]
  - MUSCULOSKELETAL CHEST PAIN [None]
  - RIB FRACTURE [None]
